FAERS Safety Report 6344023-4 (Version None)
Quarter: 2009Q3

REPORT INFORMATION
  Report Type: 
  Country: None (occurrence: None)
  Receive Date: 20090908
  Receipt Date: 20090825
  Transmission Date: 20100115
  Serious: Yes (Hospitalization)
  Sender: FDA-Public Use
  Company Number: JP-PFIZER INC-2009262792

PATIENT

DRUGS (1)
  1. ZOLOFT [Suspect]
     Dosage: 50 MG A DAY
     Route: 048
     Dates: start: 20090818, end: 20090801

REACTIONS (1)
  - OCULOMUCOCUTANEOUS SYNDROME [None]
